FAERS Safety Report 22532784 (Version 2)
Quarter: 2024Q4

REPORT INFORMATION
  Report Type: Spontaneous
  Country: DE (occurrence: DE)
  Receive Date: 20230607
  Receipt Date: 20241108
  Transmission Date: 20250114
  Serious: Yes (Death, Hospitalization, Other)
  Sender: NOVARTIS
  Company Number: DE-NOVPHSZ-PHHY2019DE107659

PATIENT
  Age: 44 Year
  Sex: Female

DRUGS (12)
  1. CYCLOSPORINE [Suspect]
     Active Substance: CYCLOSPORINE
     Indication: Systemic scleroderma
     Dosage: UNK
     Route: 065
  2. CYCLOPHOSPHAMIDE [Suspect]
     Active Substance: CYCLOPHOSPHAMIDE
     Indication: Systemic scleroderma
     Route: 065
  3. CYCLOPHOSPHAMIDE [Suspect]
     Active Substance: CYCLOPHOSPHAMIDE
     Route: 065
  4. BOSENTAN [Suspect]
     Active Substance: BOSENTAN
     Indication: Systemic scleroderma
     Route: 048
  5. BOSENTAN [Suspect]
     Active Substance: BOSENTAN
     Route: 048
  6. SILDENAFIL [Suspect]
     Active Substance: SILDENAFIL
     Indication: Systemic scleroderma
     Route: 065
  7. SILDENAFIL [Suspect]
     Active Substance: SILDENAFIL
     Route: 065
  8. OPSUMIT [Suspect]
     Active Substance: MACITENTAN
     Indication: Systemic scleroderma
     Dosage: UNK
     Route: 048
  9. OPSUMIT [Suspect]
     Active Substance: MACITENTAN
     Dosage: UNK
     Route: 048
  10. ALPROSTADIL ALFADEX [Suspect]
     Active Substance: ALPROSTADIL ALFADEX
     Indication: Systemic scleroderma
     Route: 065
  11. ALPROSTADIL ALFADEX [Suspect]
     Active Substance: ALPROSTADIL ALFADEX
     Route: 065
  12. ILOPROST TROMETHAMINE [Suspect]
     Active Substance: ILOPROST TROMETHAMINE
     Indication: Systemic scleroderma
     Route: 065

REACTIONS (14)
  - Multiple organ dysfunction syndrome [Fatal]
  - Ventricular hypokinesia [Fatal]
  - Sepsis [Fatal]
  - Right ventricular dilatation [Fatal]
  - Myocardial fibrosis [Fatal]
  - Systemic scleroderma [Fatal]
  - Cardiac dysfunction [Fatal]
  - Pneumonia [Fatal]
  - Respiratory failure [Fatal]
  - Left ventricular dysfunction [Fatal]
  - Myocarditis [Fatal]
  - Disease progression [Fatal]
  - Galectin-3 increased [Fatal]
  - Right ventricular failure [Fatal]
